FAERS Safety Report 9459578 (Version 1)
Quarter: 2013Q3

REPORT INFORMATION
  Report Type: Spontaneous
  Country: US (occurrence: US)
  Receive Date: 20130815
  Receipt Date: 20130815
  Transmission Date: 20140515
  Serious: Yes (Hospitalization)
  Sender: FDA-Public Use
  Company Number: US-GENZYME-CAMP-1003078

PATIENT
  Age: 11 Year
  Sex: Female

DRUGS (4)
  1. CAMPATH [Suspect]
     Indication: BONE MARROW CONDITIONING REGIMEN
     Dosage: 7.2 MG, QD
     Route: 065
     Dates: start: 20130806, end: 20130807
  2. CEFTRIAXONE [Concomitant]
     Indication: PREMEDICATION
     Dosage: UNK
     Route: 065
     Dates: start: 20130806
  3. BENADRYL [Concomitant]
     Indication: PREMEDICATION
     Dosage: UNK
     Route: 065
     Dates: start: 20130806
  4. ZANTAC [Concomitant]
     Indication: PREMEDICATION
     Dosage: UNK
     Route: 065
     Dates: start: 20130806

REACTIONS (2)
  - Arrhythmia supraventricular [Not Recovered/Not Resolved]
  - Off label use [Unknown]
